FAERS Safety Report 20947428 (Version 1)
Quarter: 2022Q2

REPORT INFORMATION
  Report Type: Spontaneous
  Country: BG (occurrence: BG)
  Receive Date: 20220610
  Receipt Date: 20220610
  Transmission Date: 20220721
  Serious: Yes (Other)
  Sender: FDA-Public Use
  Company Number: BG-009507513-2206BGR001489

PATIENT
  Age: 57 Year
  Sex: Male

DRUGS (5)
  1. PEMBROLIZUMAB [Suspect]
     Active Substance: PEMBROLIZUMAB
     Indication: Nasal sinus cancer
     Dosage: 200 MILLIGRAM
     Dates: start: 20210913, end: 20211006
  2. PEMBROLIZUMAB [Suspect]
     Active Substance: PEMBROLIZUMAB
     Dosage: 200 MILLIGRAM
     Dates: start: 20211025
  3. BISOPROLOL FUMARATE [Concomitant]
     Active Substance: BISOPROLOL FUMARATE
     Indication: Arrhythmia
     Dosage: 2.5 MILLIGRAM, QD
  4. CISPLATIN [Concomitant]
     Active Substance: CISPLATIN
     Indication: Nasal sinus cancer
     Dosage: UNK
     Dates: start: 20210913, end: 20211006
  5. FLUOROURACIL SODIUM [Concomitant]
     Active Substance: FLUOROURACIL SODIUM
     Indication: Nasal sinus cancer
     Dosage: UNK
     Dates: start: 20210913, end: 20211006

REACTIONS (1)
  - Malignant lymphoid neoplasm [Unknown]
